FAERS Safety Report 5410339-9 (Version None)
Quarter: 2007Q3

REPORT INFORMATION
  Report Type: 
  Country: None (occurrence: None)
  Receive Date: 20070808
  Receipt Date: 20070723
  Transmission Date: 20080115
  Serious: No
  Sender: FDA-Public Use
  Company Number: DSA_30324_2007

PATIENT
  Sex: Female

DRUGS (1)
  1. RENIVACE (RENIVACE-ENALAPRIL MALEATE) [Suspect]
     Indication: HYPERTENSION
     Dosage: 2.5 MG QD ORAL
     Route: 048
     Dates: start: 20000101

REACTIONS (2)
  - ALOPECIA [None]
  - PNEUMOTHORAX [None]
